FAERS Safety Report 7312025-7 (Version None)
Quarter: 2011Q1

REPORT INFORMATION
  Report Type: 
  Country: None (occurrence: None)
  Receive Date: 20110224
  Receipt Date: 20110216
  Transmission Date: 20110831
  Serious: Yes (Hospitalization)
  Sender: FDA-Public Use
  Company Number: FR-PFIZER INC-FR-WYE-H08112709

PATIENT
  Age: 83 Year
  Sex: Female

DRUGS (12)
  1. ATHYMIL [Concomitant]
     Indication: DEPRESSION
     Route: 048
  2. VFEND [Suspect]
     Indication: FUNGAL INFECTION
     Dosage: DOSE UNKNOWN, 1 DOSE DAILY
     Dates: start: 20081025, end: 20081027
  3. COUMADIN [Interacting]
     Indication: THROMBOPHLEBITIS
     Dosage: DOSE UNKNOWN
     Route: 048
     Dates: end: 20081027
  4. AMLOR [Concomitant]
     Indication: HYPERTENSION
     Route: 048
  5. NEXIUM [Interacting]
     Indication: OESOPHAGITIS
     Dosage: DOSE UNKNOWN
     Route: 048
  6. LASIX [Concomitant]
     Indication: HYPERTENSION
     Route: 048
  7. PARACETAMOL [Concomitant]
     Indication: PAIN
     Route: 048
  8. PAROXETINE HCL [Interacting]
     Indication: DEPRESSION
     Dosage: DOSE UNKNOWN
     Route: 048
  9. ROCEPHIN [Interacting]
     Indication: LUNG DISORDER
     Dosage: DOSE UNKNOWN
     Route: 065
  10. CORDARONE [Interacting]
     Indication: ATRIAL FIBRILLATION
     Dosage: 200 MG, FREQUENCY UNK
     Route: 048
  11. TARGOCID [Interacting]
     Indication: LUNG DISORDER
     Dosage: DOSE UNKNOWN
     Route: 048
  12. REMINYL [Concomitant]
     Indication: DEMENTIA ALZHEIMER'S TYPE
     Route: 048

REACTIONS (2)
  - DRUG INTERACTION [None]
  - INTERNATIONAL NORMALISED RATIO INCREASED [None]
